FAERS Safety Report 7530395-1 (Version None)
Quarter: 2011Q2

REPORT INFORMATION
  Report Type: 
  Country: None (occurrence: None)
  Receive Date: 20110607
  Receipt Date: 20110525
  Transmission Date: 20111010
  Serious: Yes (Other)
  Sender: FDA-Public Use
  Company Number: CA-ELI_LILLY_AND_COMPANY-CA201105008021

PATIENT
  Age: 45 Year
  Sex: Female

DRUGS (4)
  1. CYMBALTA [Suspect]
     Dosage: 30 MG, QOD
  2. CYMBALTA [Suspect]
     Dosage: 90 MG, UNKNOWN
  3. CYMBALTA [Suspect]
     Dosage: 60 MG, UNKNOWN
  4. CYMBALTA [Suspect]
     Dosage: 60 MG, QOD

REACTIONS (2)
  - DRUG PRESCRIBING ERROR [None]
  - LOSS OF CONSCIOUSNESS [None]
